FAERS Safety Report 7339680-X (Version None)
Quarter: 2011Q1

REPORT INFORMATION
  Report Type: 
  Country: None (occurrence: None)
  Receive Date: 20110309
  Receipt Date: 20110223
  Transmission Date: 20110831
  Serious: Yes (Hospitalization)
  Sender: FDA-Public Use
  Company Number: US-SHIRE-SPV1-2010-00481

PATIENT
  Sex: Female
  Weight: 60.771 kg

DRUGS (14)
  1. VELAGLUCERASE ALFA [Suspect]
     Indication: GAUCHER'S DISEASE
     Dosage: 3600 IU, 1X/2WKS
     Route: 041
     Dates: start: 20091105
  2. DIAMOX                             /00016901/ [Concomitant]
     Dosage: 250 MG, 1X/DAY:QD
     Dates: start: 20091210
  3. MULTIVITAMIN                       /00097801/ [Concomitant]
     Indication: SUPPLEMENTATION THERAPY
  4. TUMS                               /00108001/ [Concomitant]
     Indication: SUPPLEMENTATION THERAPY
  5. INRED [Concomitant]
     Indication: IRON DEFICIENCY
  6. DIAMOX                             /00016901/ [Concomitant]
     Indication: BENIGN INTRACRANIAL HYPERTENSION
     Dosage: 250 MG, 3X/DAY:TID
     Dates: start: 20100211
  7. RESTORIL [Concomitant]
     Indication: INSOMNIA
     Dosage: 30 MG, 1X/DAY:QD
  8. ADVIL [Concomitant]
     Indication: PAIN
     Dosage: UNK, AS REQ'D
  9. TYLENOL WITH CODEIN #3 [Concomitant]
     Dosage: UNK, AS REQ'D
  10. VITAMIN A [Concomitant]
     Indication: SUPPLEMENTATION THERAPY
     Dosage: 5000 IU, UNK
  11. VITAMIN B12 NOS [Concomitant]
     Dosage: UNK
  12. INDERAL                            /00030001/ [Concomitant]
     Indication: BENIGN INTRACRANIAL HYPERTENSION
     Dosage: UNK, UNK
     Dates: start: 20100222
  13. PROZAC                             /00724401/ [Concomitant]
     Indication: DEPRESSION
     Dosage: 40 MG, 1X/DAY:QD
     Dates: start: 20090402
  14. K-DUR [Concomitant]
     Indication: SUPPLEMENTATION THERAPY
     Dosage: UNK

REACTIONS (1)
  - MIGRAINE [None]
